FAERS Safety Report 8297574-X (Version None)
Quarter: 2012Q2

REPORT INFORMATION
  Report Type: 
  Country: None (occurrence: None)
  Receive Date: 20120419
  Receipt Date: 20120412
  Transmission Date: 20120825
  Serious: Yes (Other)
  Sender: FDA-Public Use
  Company Number: GB-JNJFOC-20120407061

PATIENT
  Sex: Female

DRUGS (2)
  1. GOLIMUMAB [Suspect]
     Indication: PRODUCT USED FOR UNKNOWN INDICATION
     Route: 058
     Dates: start: 20120315
  2. GOLIMUMAB [Suspect]
     Route: 058

REACTIONS (3)
  - VULVOVAGINAL CANDIDIASIS [None]
  - CONTUSION [None]
  - PAIN [None]
